FAERS Safety Report 22644548 (Version 1)
Quarter: 2023Q2

REPORT INFORMATION
  Report Type: Spontaneous
  Country: NL (occurrence: NL)
  Receive Date: 20230627
  Receipt Date: 20230627
  Transmission Date: 20230722
  Serious: Yes (Life-Threatening, Hospitalization)
  Sender: FDA-Public Use
  Company Number: None

PATIENT
  Age: 41 Year
  Sex: Male
  Weight: 83.4 kg

DRUGS (9)
  1. FLUOROURACIL [Suspect]
     Active Substance: FLUOROURACIL
     Indication: Colon neoplasm
     Dosage: 3.2 MG/ML IN A VOLUME OF 1000 ML: TREATMENT EVERY 2 WEEKS, STRENGTH: 50MG/ML
     Dates: start: 20220727, end: 20220809
  2. LEUCOVORIN [Concomitant]
     Active Substance: LEUCOVORIN
     Dosage: 25 MG/ML (NA-SALT)
  3. METOCLOPRAMIDE [Concomitant]
     Active Substance: METOCLOPRAMIDE
     Dosage: TABLET, 10 MG (MILLIGRAM)
  4. IRINOTECAN [Concomitant]
     Active Substance: IRINOTECAN
     Dosage: SOLUTION FOR INFUSION, 20 MG/ML (MILLIGRAMS PER MILLILITER)
  5. DEXAMETHASONE [Concomitant]
     Active Substance: DEXAMETHASONE
     Dosage: TABLET, 4 MG (MILLIGRAM)
  6. BEVACIZUMAB [Concomitant]
     Active Substance: BEVACIZUMAB
     Dosage: SOLUTION FOR INJECTION, 25 MG/ML (MILLIGRAMS PER MILLILITER)
  7. ATROPINE [Concomitant]
     Active Substance: ATROPINE
     Dosage: SOLUTION FOR INJECTION, 0.25 MG/ML (MILLIGRAM PER MILLILITER)
  8. ONDANSETRON [Concomitant]
     Active Substance: ONDANSETRON
     Dosage: TABLET, 8 MG (MILLIGRAM)
  9. OXALIPLATIN [Concomitant]
     Active Substance: OXALIPLATIN
     Dosage: CONCENTRATE FOR SOLUTION FOR INFUSION, 5 MG/ML (MILLIGRAMS PER MILLILITER)

REACTIONS (1)
  - Arteriospasm coronary [Recovered/Resolved]

NARRATIVE: CASE EVENT DATE: 20220809
